FAERS Safety Report 15977607 (Version 2)
Quarter: 2019Q1

REPORT INFORMATION
  Report Type: Spontaneous
  Country: US (occurrence: US)
  Receive Date: 20190218
  Receipt Date: 20190310
  Transmission Date: 20190418
  Serious: No
  Sender: FDA-Public Use
  Company Number: US-009507513-1902USA006765

PATIENT
  Age: 21 Year
  Sex: Female

DRUGS (1)
  1. NUVARING [Suspect]
     Active Substance: ETHINYL ESTRADIOL\ETONOGESTREL
     Indication: CONTRACEPTION
     Dosage: RING, THREE WEEKS IN, ONE WEEK OUT
     Route: 067
     Dates: start: 2015

REACTIONS (5)
  - Acne [Not Recovered/Not Resolved]
  - Device expulsion [Recovered/Resolved]
  - Headache [Not Recovered/Not Resolved]
  - Accidental underdose [Unknown]
  - Mood altered [Not Recovered/Not Resolved]

NARRATIVE: CASE EVENT DATE: 201902
